FAERS Safety Report 9545904 (Version 1)
Quarter: 2013Q3

REPORT INFORMATION
  Report Type: Spontaneous
  Country: FR (occurrence: FR)
  Receive Date: 20130923
  Receipt Date: 20130923
  Transmission Date: 20140515
  Serious: Yes (Hospitalization)
  Sender: FDA-Public Use
  Company Number: FR-ACTAVIS-2013-16562

PATIENT
  Age: 73 Year
  Sex: Male

DRUGS (7)
  1. GEMCITABINE (UNKNOWN) [Suspect]
     Indication: PLEURAL MESOTHELIOMA MALIGNANT
     Dosage: 1480 MG, DAILY
     Route: 042
     Dates: start: 20130820, end: 20130820
  2. NOVONORM [Concomitant]
     Indication: PRODUCT USED FOR UNKNOWN INDICATION
     Dosage: 4 MG, DAILY
     Route: 065
  3. JANUVIA [Concomitant]
     Indication: PRODUCT USED FOR UNKNOWN INDICATION
     Dosage: 200 MG, DAILY
     Route: 065
  4. ESOMEPRAZOLE [Concomitant]
     Indication: PRODUCT USED FOR UNKNOWN INDICATION
     Dosage: 20 MG, DAILY
     Route: 065
  5. LANTUS [Concomitant]
     Indication: PRODUCT USED FOR UNKNOWN INDICATION
     Dosage: 8 IU, DAILY
     Route: 065
     Dates: start: 2011
  6. ZOPHREN                            /00955301/ [Concomitant]
     Indication: PREMEDICATION
     Dosage: 8 MG, SINGLE
     Route: 042
     Dates: start: 20130820, end: 20130820
  7. SOLUMEDROL [Concomitant]
     Indication: PREMEDICATION
     Dosage: 40 MG, SINGLE
     Route: 042
     Dates: start: 20130820, end: 20130820

REACTIONS (1)
  - Ischaemic stroke [Recovered/Resolved]
